FAERS Safety Report 7936165-4 (Version None)
Quarter: 2011Q4

REPORT INFORMATION
  Report Type: 
  Country: None (occurrence: None)
  Receive Date: 20111123
  Receipt Date: 20111121
  Transmission Date: 20120403
  Serious: Yes (Other)
  Sender: FDA-Public Use
  Company Number: US-PFIZER INC-2011284902

PATIENT
  Sex: Male
  Weight: 90.703 kg

DRUGS (6)
  1. DETROL LA [Suspect]
     Indication: URINARY INCONTINENCE
     Dosage: UNK
     Route: 048
     Dates: start: 20110101, end: 20110121
  2. VALTREX [Concomitant]
     Indication: HERPES ZOSTER
     Dosage: UNK
  3. ISENTRESS [Concomitant]
     Indication: HIV INFECTION
     Dosage: UNK
  4. OXYBUTYNIN HYDROCHLORIDE [Suspect]
     Indication: URINARY INCONTINENCE
     Dosage: UNK, 1X/DAY
     Route: 048
     Dates: start: 20110215, end: 20110307
  5. ETRAVIRINE [Concomitant]
     Indication: HIV INFECTION
     Dosage: UNK
  6. FOSAMPRENAVIR [Concomitant]
     Indication: HIV INFECTION
     Dosage: UNK

REACTIONS (5)
  - APHONIA [None]
  - RESPIRATORY MONILIASIS [None]
  - VOCAL CORD DISORDER [None]
  - DEHYDRATION [None]
  - URINARY INCONTINENCE [None]
